FAERS Safety Report 8758874 (Version 2)
Quarter: 2012Q4

REPORT INFORMATION
  Report Type: Spontaneous
  Country: DK (occurrence: None)
  Receive Date: 20120814
  Receipt Date: 20121002
  Transmission Date: 20130627
  Serious: Yes (Hospitalization)
  Sender: FDA-Public Use
  Company Number: 2012MA009783

PATIENT
  Age: 75 Year
  Sex: Female

DRUGS (4)
  1. METOCLOPRAMIDE [Suspect]
     Indication: NAUSEA POST CHEMOTHERAPY
     Route: 048
     Dates: start: 20120417
  2. GABAPENTIN [Concomitant]
  3. LANSOPRAZOLE [Concomitant]
  4. CHEMOTHERAPY [Concomitant]

REACTIONS (4)
  - Muscle twitching [None]
  - Dyskinesia [None]
  - Dysarthria [None]
  - Tinnitus [None]
